FAERS Safety Report 9327718 (Version 1)
Quarter: 2013Q2

REPORT INFORMATION
  Report Type: Spontaneous
  Country: US (occurrence: US)
  Receive Date: 20130604
  Receipt Date: 20130604
  Transmission Date: 20140414
  Serious: No
  Sender: FDA-Public Use
  Company Number: US-PFIZER INC-2013165162

PATIENT
  Age: 75 Year
  Sex: Female
  Weight: 92.5 kg

DRUGS (1)
  1. PREMARIN [Suspect]
     Indication: VULVOVAGINAL PAIN
     Dosage: UNK
     Route: 067
     Dates: end: 201304

REACTIONS (4)
  - Rash generalised [Unknown]
  - Blood count abnormal [Unknown]
  - Scar [Unknown]
  - Drug ineffective for unapproved indication [Not Recovered/Not Resolved]
